FAERS Safety Report 10080447 (Version 2)
Quarter: 2014Q2

REPORT INFORMATION
  Report Type: Spontaneous
  Country: FR (occurrence: FR)
  Receive Date: 20140416
  Receipt Date: 20140507
  Transmission Date: 20141212
  Serious: Yes (Hospitalization)
  Sender: FDA-Public Use
  Company Number: FR-ROCHE-1377998

PATIENT
  Age: 63 Year
  Sex: Female

DRUGS (12)
  1. VESANOID [Suspect]
     Indication: ACUTE PROMYELOCYTIC LEUKAEMIA
     Route: 048
     Dates: start: 20140310, end: 20140313
  2. IDARUBICIN [Suspect]
     Indication: ACUTE PROMYELOCYTIC LEUKAEMIA
     Route: 065
     Dates: start: 20140311
  3. ROCEPHINE [Concomitant]
     Indication: PROPHYLAXIS
     Route: 065
     Dates: start: 20140311, end: 20140313
  4. ZYLORIC [Concomitant]
     Route: 065
     Dates: start: 20140310, end: 20140318
  5. ZOPHREN [Concomitant]
     Route: 065
     Dates: start: 20140310
  6. LOVENOX [Concomitant]
     Route: 065
     Dates: start: 20140310, end: 20140311
  7. CYTARABINE [Concomitant]
     Indication: ACUTE PROMYELOCYTIC LEUKAEMIA
     Route: 065
     Dates: start: 20140311
  8. IDARUBICIN [Concomitant]
  9. NEODEX (FRANCE) [Concomitant]
     Indication: ACUTE PROMYELOCYTIC LEUKAEMIA
     Route: 065
     Dates: start: 20140311
  10. GENTAMYCIN [Concomitant]
     Indication: PROPHYLAXIS
     Route: 065
     Dates: start: 20140311, end: 20140313
  11. VANCOMYCIN [Concomitant]
     Indication: PROPHYLAXIS
     Route: 065
     Dates: start: 20140311
  12. VESANOID [Concomitant]
     Route: 048

REACTIONS (6)
  - Hepatocellular injury [Recovered/Resolved]
  - Hepatic enzyme increased [Recovered/Resolved]
  - Abdominal pain [Recovered/Resolved]
  - Bilirubin conjugated increased [Recovered/Resolved]
  - Lipase increased [Recovered/Resolved]
  - Enteritis [Recovered/Resolved]
